FAERS Safety Report 19965751 (Version 2)
Quarter: 2024Q3

REPORT INFORMATION
  Report Type: Spontaneous
  Country: DE (occurrence: DE)
  Receive Date: 20211019
  Receipt Date: 20240829
  Transmission Date: 20241017
  Serious: Yes (Other)
  Sender: AUROBINDO
  Company Number: DE-002147023-NVSC2021DE194657

PATIENT
  Sex: Female
  Weight: 87.5 kg

DRUGS (6)
  1. LETROZOLE [Suspect]
     Active Substance: LETROZOLE
     Indication: Breast cancer
     Dosage: 2.5 MG, ONCE A DAY
     Route: 048
     Dates: start: 20201102
  2. KISQALI [Suspect]
     Active Substance: RIBOCICLIB
     Indication: Breast cancer
     Dosage: 600 MG, ONCE A DAY (SCHEMA 21 DAYS INTAKE, THEN 7 DAYS PAUSE)
     Route: 048
     Dates: start: 20201102, end: 20210705
  3. KISQALI [Suspect]
     Active Substance: RIBOCICLIB
     Dosage: 600 MG,ONCE A DAY (SCHEMA 21 DAYS INTAKE, THEN 7 DAYS PAUSE)
     Route: 048
     Dates: start: 20210802, end: 20210822
  4. KISQALI [Suspect]
     Active Substance: RIBOCICLIB
     Dosage: 600 MG, ONCE A DAY (SCHEMA 21 DAYS INTAKE, THEN 7 DAYS PAUSE)
     Route: 048
     Dates: start: 20210927
  5. AFINITOR [Suspect]
     Active Substance: EVEROLIMUS
     Indication: Breast cancer
     Dosage: 5 MILLIGRAM, ONCE A DAY
     Route: 048
     Dates: start: 20220318, end: 20220411
  6. AFINITOR [Suspect]
     Active Substance: EVEROLIMUS
     Dosage: 2.5 MILLIGRAM, ONCE A DAY
     Route: 048
     Dates: start: 20220628, end: 20220712

REACTIONS (1)
  - Glomerular filtration rate abnormal [Not Recovered/Not Resolved]

NARRATIVE: CASE EVENT DATE: 20201222
